FAERS Safety Report 12527810 (Version 2)
Quarter: 2016Q2

REPORT INFORMATION
  Report Type: Report from Study
  Country: US (occurrence: US)
  Receive Date: 20160610
  Receipt Date: 20160610
  Transmission Date: 20160815
  Serious: Yes (Hospitalization)
  Sender: FDA-Public Use
  Company Number: US-BAYER-2016-047119

PATIENT
  Age: 84 Year
  Sex: Male

DRUGS (2)
  1. NEXAVAR [Suspect]
     Active Substance: SORAFENIB
     Indication: HEPATOCELLULAR CARCINOMA
     Dosage: 200 MG, BID
     Route: 048
     Dates: start: 20160225, end: 20160316
  2. NEXAVAR [Suspect]
     Active Substance: SORAFENIB
     Indication: HEPATOCELLULAR CARCINOMA
     Dosage: 400 MG, BID
     Route: 048
     Dates: start: 20160317, end: 20160527

REACTIONS (6)
  - Diarrhoea [Not Recovered/Not Resolved]
  - Fatigue [None]
  - Weight decreased [None]
  - Underdose [None]
  - Diarrhoea [None]
  - Faecaloma [None]

NARRATIVE: CASE EVENT DATE: 201602
